FAERS Safety Report 4567842-3 (Version None)
Quarter: 2005Q1

REPORT INFORMATION
  Report Type: 
  Country: None (occurrence: None)
  Receive Date: 20050202
  Receipt Date: 20041027
  Transmission Date: 20050727
  Serious: No
  Sender: FDA-Public Use
  Company Number: US-GLAXOSMITHKLINE-A0531545A

PATIENT
  Age: 63 Year
  Sex: Female

DRUGS (4)
  1. AVANDAMET [Suspect]
     Dosage: 2MG TWICE PER DAY
     Route: 048
     Dates: start: 20040302
  2. LEXAPRO [Concomitant]
  3. CLONAZEPAM [Concomitant]
  4. SYNTHROID [Concomitant]

REACTIONS (6)
  - ANXIETY [None]
  - ARTHRALGIA [None]
  - DEPRESSION [None]
  - DIZZINESS [None]
  - MALAISE [None]
  - SOMNOLENCE [None]
